FAERS Safety Report 11291297 (Version 2)
Quarter: 2015Q3

REPORT INFORMATION
  Report Type: Report from Study
  Country: US (occurrence: US)
  Receive Date: 20150722
  Receipt Date: 20150806
  Transmission Date: 20151125
  Serious: Yes (Other)
  Sender: FDA-Public Use
  Company Number: US-BIOGENIDEC-2015BI100075

PATIENT
  Age: 32 Year
  Sex: Female

DRUGS (5)
  1. ASYCLOVER [Concomitant]
  2. TOTERADINE [Concomitant]
  3. TECFIDERA [Suspect]
     Active Substance: DIMETHYL FUMARATE
     Indication: MULTIPLE SCLEROSIS
     Route: 048
  4. VITAMIN D3 [Concomitant]
     Active Substance: CHOLECALCIFEROL
  5. POTASSIUM [Concomitant]
     Active Substance: POTASSIUM

REACTIONS (2)
  - Infection [Unknown]
  - Amyotrophic lateral sclerosis [Unknown]
